FAERS Safety Report 16689021 (Version 1)
Quarter: 2019Q3

REPORT INFORMATION
  Report Type: Report from Study
  Country: US (occurrence: US)
  Receive Date: 20190809
  Receipt Date: 20190809
  Transmission Date: 20191004
  Serious: Yes (Other)
  Sender: FDA-Public Use
  Company Number: US-BIOGEN-2019BI00771848

PATIENT
  Age: 66 Year
  Sex: Female

DRUGS (1)
  1. AVONEX [Suspect]
     Active Substance: INTERFERON BETA-1A
     Indication: MULTIPLE SCLEROSIS
     Route: 030
     Dates: start: 19970201

REACTIONS (6)
  - Loss of consciousness [Recovered/Resolved]
  - Dehydration [Unknown]
  - Blood glucose increased [Recovered/Resolved]
  - Product dose omission [Unknown]
  - Blood sodium decreased [Unknown]
  - Pancreatic failure [Recovered/Resolved]

NARRATIVE: CASE EVENT DATE: 201906
